FAERS Safety Report 4706057-2 (Version None)
Quarter: 2005Q2

REPORT INFORMATION
  Report Type: 
  Country: None (occurrence: None)
  Receive Date: 20050629
  Receipt Date: 20050620
  Transmission Date: 20051028
  Serious: Yes (Hospitalization, Other)
  Sender: FDA-Public Use
  Company Number: 2005082466

PATIENT
  Age: 67 Year
  Sex: Female
  Weight: 114.3065 kg

DRUGS (2)
  1. GLUCOTROL XL [Suspect]
     Indication: DIABETES MELLITUS
     Dosage: 5 MG (5 MG, 1 IN 1 D), ORAL
     Route: 048
     Dates: start: 20050501
  2. TRANXENE [Concomitant]

REACTIONS (10)
  - ANXIETY [None]
  - BLOOD GLUCOSE ABNORMAL [None]
  - CARDIAC FAILURE CONGESTIVE [None]
  - DRUG EFFECT DECREASED [None]
  - HYPERTENSION [None]
  - NEPHROLITHIASIS [None]
  - RESTLESSNESS [None]
  - STRESS [None]
  - TREATMENT NONCOMPLIANCE [None]
  - TREMOR [None]
